FAERS Safety Report 15314027 (Version 2)
Quarter: 2018Q3

REPORT INFORMATION
  Report Type: Spontaneous
  Country: US (occurrence: US)
  Receive Date: 20180824
  Receipt Date: 20180903
  Transmission Date: 20181010
  Serious: Yes (Hospitalization, Other)
  Sender: FDA-Public Use
  Company Number: US-DRREDDYS-USA/USA/18/0103255

PATIENT
  Age: 72 Year
  Sex: Male

DRUGS (7)
  1. TACROLIMUS. [Suspect]
     Active Substance: TACROLIMUS
     Dosage: IN THE EVENING
  2. PREDNISONE. [Suspect]
     Active Substance: PREDNISONE
     Indication: IMMUNOSUPPRESSION
     Route: 065
  3. AMOXICILLIN AND CLAVULANATE POTASSIUM [Suspect]
     Active Substance: AMOXICILLIN\CLAVULANATE POTASSIUM
     Indication: PNEUMONIA
     Route: 048
     Dates: start: 201503
  4. VALGANCICLOVIR. [Concomitant]
     Active Substance: VALGANCICLOVIR
     Indication: ANTIVIRAL PROPHYLAXIS
     Route: 065
  5. LEFLUNOMIDE. [Concomitant]
     Active Substance: LEFLUNOMIDE
     Indication: HUMAN POLYOMAVIRUS INFECTION
     Route: 065
  6. TACROLIMUS. [Suspect]
     Active Substance: TACROLIMUS
     Indication: IMMUNOSUPPRESSION
     Dosage: IN THE MORNING
     Route: 065
  7. MINOCYCLINE HYDROCHLORIDE. [Suspect]
     Active Substance: MINOCYCLINE HYDROCHLORIDE
     Indication: PRODUCT USED FOR UNKNOWN INDICATION
     Route: 065

REACTIONS (12)
  - Pulmonary mass [Recovered/Resolved]
  - Inflammation [Recovering/Resolving]
  - Drug level increased [Recovering/Resolving]
  - Product dispensing error [Unknown]
  - Pulmonary fibrosis [Recovering/Resolving]
  - Disease recurrence [Recovering/Resolving]
  - Disease progression [Recovering/Resolving]
  - Brain abscess [Recovered/Resolved]
  - Fungal infection [Recovered/Resolved]
  - Human polyomavirus infection [Recovering/Resolving]
  - Haematuria [Recovering/Resolving]
  - Nephropathy [Recovering/Resolving]

NARRATIVE: CASE EVENT DATE: 2015
